FAERS Safety Report 18968254 (Version 2)
Quarter: 2021Q1

REPORT INFORMATION
  Report Type: Spontaneous
  Country: GB (occurrence: GB)
  Receive Date: 20210304
  Receipt Date: 20210330
  Transmission Date: 20210420
  Serious: Yes (Hospitalization)
  Sender: FDA-Public Use
  Company Number: NVSC2021GB042234

PATIENT
  Age: 57 Year
  Sex: Male

DRUGS (2)
  1. BENEPALI [Suspect]
     Active Substance: ETANERCEPT
     Indication: PSORIATIC ARTHROPATHY
     Dosage: 50 MG, QW
     Route: 058
     Dates: start: 20200827
  2. PARACETAMOL [Suspect]
     Active Substance: ACETAMINOPHEN
     Indication: PRODUCT USED FOR UNKNOWN INDICATION
     Dosage: UNK
     Route: 065

REACTIONS (12)
  - Depression [Unknown]
  - Sinusitis [Unknown]
  - Anger [Unknown]
  - Product storage error [Unknown]
  - Tremor [Unknown]
  - Hallucination, auditory [Unknown]
  - Anxiety [Unknown]
  - Hiatus hernia [Unknown]
  - Therapeutic response shortened [Unknown]
  - Insomnia [Unknown]
  - Psoriatic arthropathy [Unknown]
  - Drug intolerance [Unknown]
